FAERS Safety Report 19837702 (Version 2)
Quarter: 2021Q3

REPORT INFORMATION
  Report Type: Spontaneous
  Country: GB (occurrence: GB)
  Receive Date: 20210916
  Receipt Date: 20210930
  Transmission Date: 20211014
  Serious: Yes (Other)
  Sender: FDA-Public Use
  Company Number: GB-MICRO LABS LIMITED-ML2021-02257

PATIENT
  Age: 86 Year
  Sex: Male

DRUGS (7)
  1. COMBODART [Suspect]
     Active Substance: DUTASTERIDE\TAMSULOSIN
     Dates: start: 201202
  2. PAROXETINE. [Suspect]
     Active Substance: PAROXETINE
  3. LOSARTAN POTASSIUM. [Suspect]
     Active Substance: LOSARTAN POTASSIUM
     Indication: BLOOD PRESSURE MEASUREMENT
  4. ZOPICLONE [Suspect]
     Active Substance: ZOPICLONE
  5. LOSARTAN POTASSIUM. [Suspect]
     Active Substance: LOSARTAN POTASSIUM
  6. RIVAROXABAN [Suspect]
     Active Substance: RIVAROXABAN
  7. PAROXETINE. [Suspect]
     Active Substance: PAROXETINE

REACTIONS (20)
  - Deafness [Unknown]
  - Dyspnoea [Unknown]
  - Condition aggravated [Unknown]
  - Asthenopia [Not Recovered/Not Resolved]
  - Dizziness [Unknown]
  - Peripheral swelling [Not Recovered/Not Resolved]
  - Anaemia [Recovered/Resolved]
  - Limb discomfort [Unknown]
  - Eye swelling [Not Recovered/Not Resolved]
  - Joint swelling [Not Recovered/Not Resolved]
  - Adverse drug reaction [Unknown]
  - Hypoglycaemia [Recovered/Resolved]
  - Pulmonary embolism [Recovered/Resolved]
  - Drug interaction [Unknown]
  - Fatigue [Not Recovered/Not Resolved]
  - Palpitations [Unknown]
  - Urinary tract infection [Recovered/Resolved]
  - Therapeutic product effect decreased [Unknown]
  - Anxiety [Not Recovered/Not Resolved]
  - Gait disturbance [Unknown]

NARRATIVE: CASE EVENT DATE: 2017
